FAERS Safety Report 6017511-8 (Version None)
Quarter: 2008Q4

REPORT INFORMATION
  Report Type: 
  Country: None (occurrence: None)
  Receive Date: 20081223
  Receipt Date: 20081020
  Transmission Date: 20090506
  Serious: No
  Sender: FDA-Public Use
  Company Number: US-BRISTOL-MYERS SQUIBB COMPANY-14376016

PATIENT

DRUGS (1)
  1. CARDIOLITE [Suspect]
     Dosage: THERAPY START- WITHIN LAST 2 MONTHS
     Dates: start: 20080101

REACTIONS (1)
  - DYSGEUSIA [None]
